FAERS Safety Report 8139993-8 (Version None)
Quarter: 2012Q1

REPORT INFORMATION
  Report Type: 
  Country: None (occurrence: None)
  Receive Date: 20120215
  Receipt Date: 20120207
  Transmission Date: 20120608
  Serious: Yes (Hospitalization, Disabling, Other)
  Sender: FDA-Public Use
  Company Number: US-MERCK-1108USA01139

PATIENT
  Age: 57 Year
  Sex: Female
  Weight: 91 kg

DRUGS (3)
  1. CALCIUM (UNSPECIFIED) [Concomitant]
     Route: 065
  2. FOSAMAX [Suspect]
     Route: 048
     Dates: start: 20080303, end: 20100101
  3. FOSAMAX [Suspect]
     Indication: OSTEOPOROSIS
     Route: 048
     Dates: start: 19950101, end: 20080302

REACTIONS (27)
  - AORTIC STENOSIS [None]
  - DEPRESSION [None]
  - VENOUS THROMBOSIS [None]
  - CHEST PAIN [None]
  - THROMBOSIS [None]
  - ARTHRALGIA [None]
  - HYPERTENSION [None]
  - DYSPNOEA [None]
  - FEMUR FRACTURE [None]
  - HYPERLIPIDAEMIA [None]
  - VARICOSE VEIN [None]
  - BENIGN BONE NEOPLASM [None]
  - OEDEMA [None]
  - JOINT SWELLING [None]
  - FRACTURE NONUNION [None]
  - INTERVERTEBRAL DISC DEGENERATION [None]
  - ASTHMA [None]
  - MOOD ALTERED [None]
  - SINUS TACHYCARDIA [None]
  - GASTROOESOPHAGEAL REFLUX DISEASE [None]
  - MITRAL VALVE PROLAPSE [None]
  - ANAEMIA POSTOPERATIVE [None]
  - SYNOVIAL CYST [None]
  - MITRAL VALVE INCOMPETENCE [None]
  - HAEMATURIA [None]
  - HYPOTHYROIDISM [None]
  - EAR DISORDER [None]
